FAERS Safety Report 13456955 (Version 1)
Quarter: 2017Q2

REPORT INFORMATION
  Report Type: Spontaneous
  Country: CN (occurrence: CN)
  Receive Date: 20170419
  Receipt Date: 20170419
  Transmission Date: 20170830
  Serious: Yes (Other)
  Sender: FDA-Public Use
  Company Number: CN-PFIZER INC-2017167171

PATIENT
  Age: 66 Year
  Sex: Female

DRUGS (2)
  1. NITROGLYCERIN. [Suspect]
     Active Substance: NITROGLYCERIN
     Indication: HYPERTENSION
     Dosage: 5 MG, UNK (20 DROPS/MIN, AT 10:00 AM AND AT 20:00 PM RESPECTIVELY)
     Route: 041
     Dates: start: 20050623, end: 20050624
  2. GLUCOSE [Concomitant]
     Active Substance: DEXTROSE
     Dosage: 500 ML, UNK
     Route: 041
     Dates: start: 20050623, end: 20050624

REACTIONS (1)
  - Angle closure glaucoma [Recovered/Resolved]

NARRATIVE: CASE EVENT DATE: 20050624
